FAERS Safety Report 6078242-1 (Version None)
Quarter: 2009Q1

REPORT INFORMATION
  Report Type: 
  Country: None (occurrence: None)
  Receive Date: 20090213
  Receipt Date: 20090203
  Transmission Date: 20090719
  Serious: Yes (Death)
  Sender: FDA-Public Use
  Company Number: US-ELI_LILLY_AND_COMPANY-US200902001153

PATIENT
  Age: 27 Year
  Sex: Male

DRUGS (4)
  1. ZYPREXA [Suspect]
  2. FLUOXETINE HYDROCHLORIDE [Suspect]
  3. PROCYCLIDINE HYDROCHLORIDE 2MG TAB [Concomitant]
  4. LEXAPRO [Concomitant]

REACTIONS (1)
  - DRUG TOXICITY [None]
